FAERS Safety Report 9741401 (Version 1)
Quarter: 2013Q4

REPORT INFORMATION
  Report Type: Spontaneous
  Country: JP (occurrence: JP)
  Receive Date: 20131209
  Receipt Date: 20131209
  Transmission Date: 20140711
  Serious: Yes (Other)
  Sender: FDA-Public Use
  Company Number: PHHY2013JP138038

PATIENT
  Age: 46 Year
  Sex: Female

DRUGS (4)
  1. ZOLEDRONIC ACID [Suspect]
     Indication: BREAST CANCER
  2. LETROZOLE [Suspect]
     Indication: BREAST CANCER
     Route: 048
  3. CAPECITABINE [Concomitant]
  4. PACLITAXEL [Concomitant]

REACTIONS (11)
  - Bone marrow failure [Unknown]
  - Osteonecrosis of jaw [Unknown]
  - Exposed bone in jaw [Unknown]
  - Tooth loss [Unknown]
  - Metastases to nasal sinuses [Unknown]
  - Soft tissue mass [Recovered/Resolved]
  - Epistaxis [Unknown]
  - Adenocarcinoma [Unknown]
  - Swelling [Unknown]
  - Pain [Unknown]
  - Malignant neoplasm progression [Unknown]
